FAERS Safety Report 8809668 (Version 4)
Quarter: 2012Q4

REPORT INFORMATION
  Report Type: 
  Country: AT (occurrence: AT)
  Receive Date: 20120926
  Receipt Date: 20121015
  Transmission Date: 20130627
  Serious: Yes (Life-Threatening, Hospitalization, Other)
  Sender: FDA-Public Use
  Company Number: AT-AMGEN-AUTSP2012060267

PATIENT
  Age: 85 Year
  Sex: Female
  Weight: 45.9 kg

DRUGS (3)
  1. PROLIA [Suspect]
     Indication: OSTEOPOROSIS
     Dosage: 60 mg, one time dose
     Route: 058
     Dates: start: 201109, end: 201111
  2. PANTOPRAZOLE [Concomitant]
     Indication: GASTROOESOPHAGEAL REFLUX DISEASE
     Dosage: 40 mg, UNK
     Route: 048
  3. TRAMOL                             /00020001/ [Concomitant]
     Indication: SKIN ULCER
     Dosage: 50 mg, UNK

REACTIONS (7)
  - Hypocalcaemia [Recovered/Resolved]
  - Blood parathyroid hormone increased [Recovered/Resolved]
  - Vitamin D abnormal [Recovered/Resolved]
  - Paraesthesia [Unknown]
  - Tetany [Unknown]
  - Electrocardiogram QT prolonged [Unknown]
  - Asthenia [Unknown]
